FAERS Safety Report 18438378 (Version 1)
Quarter: 2020Q4

REPORT INFORMATION
  Report Type: Spontaneous
  Country: JP (occurrence: JP)
  Receive Date: 20201029
  Receipt Date: 20201029
  Transmission Date: 20210114
  Serious: Yes (Hospitalization)
  Sender: FDA-Public Use
  Company Number: JP-ROCHE-2695134

PATIENT
  Age: 75 Year
  Sex: Male

DRUGS (3)
  1. RHEUMATREX [Suspect]
     Active Substance: METHOTREXATE SODIUM
     Indication: PRODUCT USED FOR UNKNOWN INDICATION
     Dosage: DATE OF MOST RECENT DOSE OF METHOTREXATE RECEIVED PRIOR TO EVENT ONSET: 12/AUG/2020
     Route: 048
     Dates: start: 20200513
  2. FOLIAMIN [Concomitant]
     Active Substance: FOLIC ACID
     Route: 065
     Dates: start: 20200513, end: 20200812
  3. ACTEMRA [Suspect]
     Active Substance: TOCILIZUMAB
     Indication: RHEUMATOID ARTHRITIS
     Dosage: DATE OF MOST RECENT DOSE OF TOCILIZUMAB RECEIVED PRIOR TO EVENT ONSET: 12/AUG/2020
     Route: 058
     Dates: start: 20200513

REACTIONS (1)
  - Subcutaneous abscess [Recovering/Resolving]

NARRATIVE: CASE EVENT DATE: 20200819
